FAERS Safety Report 20082139 (Version 1)
Quarter: 2021Q4

REPORT INFORMATION
  Report Type: Spontaneous
  Country: US (occurrence: None)
  Receive Date: 20211117
  Receipt Date: 20211117
  Transmission Date: 20220304
  Serious: Yes (Life-Threatening)
  Sender: FDA-Public Use
  Company Number: None

PATIENT
  Age: 67 Year
  Sex: Female
  Weight: 58.5 kg

DRUGS (3)
  1. CARVEDILOL [Suspect]
     Active Substance: CARVEDILOL
     Indication: Blood pressure increased
     Dosage: OTHER QUANTITY : 1 TABLET(S);?FREQUENCY : TWICE A DAY;?
     Route: 048
     Dates: start: 20180130
  2. TURMERIC [Concomitant]
  3. CANNABIDIOL [Concomitant]
     Active Substance: CANNABIDIOL

REACTIONS (11)
  - Seizure [None]
  - Feeling cold [None]
  - Tremor [None]
  - Gait inability [None]
  - Aphasia [None]
  - Head titubation [None]
  - Tunnel vision [None]
  - Blindness transient [None]
  - Loss of consciousness [None]
  - Fatigue [None]
  - Disorientation [None]

NARRATIVE: CASE EVENT DATE: 20211001
